FAERS Safety Report 24177695 (Version 3)
Quarter: 2024Q3

REPORT INFORMATION
  Report Type: Spontaneous
  Country: US (occurrence: US)
  Receive Date: 20240806
  Receipt Date: 20240816
  Transmission Date: 20241016
  Serious: Yes (Other)
  Sender: AMGEN
  Company Number: US-AMGEN-USASP2024153062

PATIENT
  Age: 69 Year
  Sex: Male
  Weight: 106.1 kg

DRUGS (86)
  1. TEPEZZA [Suspect]
     Active Substance: TEPROTUMUMAB-TRBW
     Indication: Endocrine ophthalmopathy
     Dosage: 10 MILLIGRAM/KILOGRAM, Q3WK (FIRST INFUSION)
     Route: 042
     Dates: start: 20220407, end: 20220408
  2. TEPEZZA [Suspect]
     Active Substance: TEPROTUMUMAB-TRBW
     Dosage: 20 MILLIGRAM/KILOGRAM, Q3WK (SECOND INFUSION)
     Route: 042
     Dates: start: 20220429, end: 20220616
  3. TEPEZZA [Suspect]
     Active Substance: TEPROTUMUMAB-TRBW
     Dosage: 20 MILLIGRAM/KILOGRAM, Q3WK (UNKNOWN INFUSION)
     Route: 042
     Dates: start: 20220616, end: 20220815
  4. TEPEZZA [Suspect]
     Active Substance: TEPROTUMUMAB-TRBW
     Dosage: 20 MILLIGRAM/KILOGRAM, Q3WK (UNKNOWN INFUSION)
     Route: 042
     Dates: start: 20220815, end: 20220906
  5. TEPEZZA [Suspect]
     Active Substance: TEPROTUMUMAB-TRBW
     Dosage: 20 MILLIGRAM/KILOGRAM, Q3WK (SEVENTH INFUSION)
     Route: 042
  6. TEPEZZA [Suspect]
     Active Substance: TEPROTUMUMAB-TRBW
     Dosage: 20 MILLIGRAM/KILOGRAM, Q3WK (EIGTH INFUSION)
     Route: 042
     Dates: start: 20220912, end: 20220912
  7. SYNTHROID [Concomitant]
     Active Substance: LEVOTHYROXINE SODIUM
     Indication: Thyroid disorder
     Dosage: 100 MICROGRAM, QD (ONE TABLET BY MOUTH EVERY DAY ON AN EMPTY STOMACH)
     Route: 048
     Dates: start: 20020603
  8. SYNTHROID [Concomitant]
     Active Substance: LEVOTHYROXINE SODIUM
     Dosage: 125 MICROGRAM, QD (TAKE ONE TABLET BY MOUTH EVERY DAY ON AN EMPTY STOMACH)
     Route: 048
     Dates: start: 20021025
  9. SYNTHROID [Concomitant]
     Active Substance: LEVOTHYROXINE SODIUM
     Dosage: 150 MICROGRAM, QD (ONE TABLET BY MOUTH EVERY DAY ON AN EMPTY STOMACH)
     Route: 048
     Dates: start: 20050909, end: 20240321
  10. SYNTHROID [Concomitant]
     Active Substance: LEVOTHYROXINE SODIUM
     Dosage: 175 MICROGRAM, QD (TAKE ONE TABLET BY MOUTH EVERY DAY)
     Route: 048
     Dates: start: 20130529
  11. POLYETHYLENE GLYCOL\PROPYLENE GLYCOL [Concomitant]
     Active Substance: POLYETHYLENE GLYCOL\PROPYLENE GLYCOL
     Indication: Dry eye
     Dosage: UNK UNK, QID 0.4 % (1 DROP IN BOTH EYES FOUR TIMES A DAY
     Dates: start: 20221229, end: 20231230
  12. CHOLECALCIFEROL [Concomitant]
     Active Substance: CHOLECALCIFEROL
     Indication: Vitamin supplementation
     Dosage: 25 MICROGRAM, QD (ONE TABLET BY MOUTH EVERY DAY))
     Route: 048
     Dates: start: 20130529, end: 20140530
  13. CHOLECALCIFEROL [Concomitant]
     Active Substance: CHOLECALCIFEROL
     Dosage: 25 MICROGRAM (TAKE TWO TABLETS BY MOUTH EVERY DAY)
     Route: 048
     Dates: start: 20160712
  14. CHOLECALCIFEROL [Concomitant]
     Active Substance: CHOLECALCIFEROL
     Dosage: 25 MICROGRAM (TAKE THREE TABLETS BY MOUTH EVERY DAY)
     Route: 048
     Dates: start: 20170113
  15. CHOLECALCIFEROL [Concomitant]
     Active Substance: CHOLECALCIFEROL
     Dosage: 50 MICROGRAM, QD (TAKE ONE TABLET BY MOUTH EVERY DAY)
     Route: 048
     Dates: start: 20221227, end: 20231228
  16. HYDROCHLOROTHIAZIDE [Concomitant]
     Active Substance: HYDROCHLOROTHIAZIDE
     Indication: Blood pressure abnormal
     Dosage: 25 MILLIGRAM, QD (TAKE ONE TABLET BY MOUTH EVERY DAY)
     Route: 048
     Dates: start: 20010201
  17. LOSARTAN [Concomitant]
     Active Substance: LOSARTAN\LOSARTAN POTASSIUM
     Indication: Blood pressure abnormal
     Dosage: 25 MILLIGRAM, QD (TAKE ONE TABLET BY MOUTH EVERY DAY)
     Route: 048
     Dates: start: 20221223, end: 20231224
  18. ASPIRIN [Concomitant]
     Active Substance: ASPIRIN
     Indication: Prophylaxis
     Dosage: 81 MILLIGRAM, QD (CHEW ONE TABLET BY MOUTH EVERY DAY)
     Route: 048
  19. ACETAMINOPHEN [Concomitant]
     Active Substance: ACETAMINOPHEN
     Indication: Pain
     Dosage: 500 MILLIGRAM (2 TABLETS BY MOUTH EVERY SIX HOURS)
     Route: 048
     Dates: start: 20010306, end: 20010313
  20. ACETAMINOPHEN [Concomitant]
     Active Substance: ACETAMINOPHEN
     Indication: Pyrexia
     Dosage: 325 MILLIGRAM, Q6H (ONE TABLET BY MOUTH EVERY 6 HOURS)
     Route: 048
     Dates: start: 20030321
  21. PSEUDOEPHEDRINE\TRIPROLIDINE [Concomitant]
     Active Substance: PSEUDOEPHEDRINE\TRIPROLIDINE
     Indication: Nasal congestion
     Dosage: 2.5 MILLIGRAM, QID (1 TABLET BY MOUTH FOUR TIMES A DAY)
     Route: 048
     Dates: start: 20010306, end: 20010316
  22. POTASSIUM CHLORIDE [Concomitant]
     Active Substance: POTASSIUM CHLORIDE
     Dosage: 750 MILLIGRAM, QD (TABLET(S) BY MOUTH EVERY DAY)
     Route: 048
     Dates: start: 20010201, end: 20010402
  23. POLYVINYL ALCOHOL;POVIDONE [Concomitant]
     Indication: Dry eye
     Dosage: UNK UNK, Q8H (1 DROP IN EACH EYE EVERY EIGHT HOURS)
     Route: 047
     Dates: start: 20000403
  24. POLYVINYL ALCOHOL;POVIDONE [Concomitant]
     Dosage: UNK UNK, Q3H (1 DROP IN BOTH EYES EVERY 3 HOURS)
     Route: 047
     Dates: start: 20040422
  25. PROPRANOLOL HYDROCHLORIDE [Concomitant]
     Active Substance: PROPRANOLOL HYDROCHLORIDE
     Dosage: 20 MILLIGRAM, TID (1 TABLET BY MOUTH THREE TIMES A DAY)40 MILLIGRAM, TID20 MILLIGRAM, TID (1 TABLET
     Route: 048
     Dates: start: 20000403
  26. PROPRANOLOL HYDROCHLORIDE [Concomitant]
     Active Substance: PROPRANOLOL HYDROCHLORIDE
     Dosage: 40 MILLIGRAM, TID
     Route: 048
     Dates: start: 20010526
  27. DEXTROMETHORPHAN\GUAIFENESIN [Concomitant]
     Active Substance: DEXTROMETHORPHAN\GUAIFENESIN
     Indication: Cough
     Dosage: UNK UNK, Q4H (1 TO 2 TEASPOONSFUL BY MOUTH EVERY FOUR HOURS)
     Route: 048
     Dates: start: 20010306, end: 20180204
  28. SALSALATE [Concomitant]
     Active Substance: SALSALATE
     Dosage: 1500 MILLIGRAM, BID (2 TABLETS BY MOUTH TWICE A DAY)
     Route: 048
     Dates: start: 20010417
  29. NAPROXEN [Concomitant]
     Active Substance: NAPROXEN
     Indication: Pain
     Dosage: 375 MILLIGRAM, BID (1 TABLET BY MOUTH TWICE A DAY)
     Route: 048
     Dates: start: 20010420
  30. PROPYLTHIOURACIL [Concomitant]
     Active Substance: PROPYLTHIOURACIL
     Dosage: 200 MILLIGRAM, TID (4 TABLET(S) BY MOUTH THREE TIMES A DAY)
     Route: 048
     Dates: start: 20000811
  31. PROPYLTHIOURACIL [Concomitant]
     Active Substance: PROPYLTHIOURACIL
     Dosage: 50 MILLIGRAM, Q8H (1 TABLET BY MOUTH EVERY EIGHT HOURS)
     Route: 048
     Dates: start: 20000915
  32. PROPYLTHIOURACIL [Concomitant]
     Active Substance: PROPYLTHIOURACIL
     Dosage: 100 MILLIGRAM, TID (2 TABLET(S) BY MOUTH THREE TIMES A DAY)
     Route: 048
     Dates: start: 20010119
  33. Ocular lubricant [Concomitant]
     Dosage: UNK UNK, QHS (3.5GM, APPLY 1/2 INCH IN EACH EYE)
     Route: 061
     Dates: start: 20001010
  34. DOXYCYCLINE HYCLATE [Concomitant]
     Active Substance: DOXYCYCLINE HYCLATE
     Dosage: 100 MILLIGRAM, BID (1 CAPSULE BY MOUTH TWICE A DAY FOR TEN DAYS UNTIL GONE FOR INFECTION)
     Route: 048
     Dates: start: 20011006
  35. COUMADIN [Concomitant]
     Active Substance: WARFARIN SODIUM
     Indication: Prophylaxis
     Dosage: 2.5 MILLIGRAM, QD (1 TABLET EVERY DAY)
     Route: 048
     Dates: start: 20001020
  36. COUMADIN [Concomitant]
     Active Substance: WARFARIN SODIUM
     Dosage: 5 MILLIGRAM, QD
     Route: 048
     Dates: start: 20010122
  37. ATENOLOL [Concomitant]
     Active Substance: ATENOLOL
     Indication: Blood pressure abnormal
     Dosage: 50 MILLIGRAM, QD (1 TABLET BY MOUTH EVERY MORNING)
     Route: 048
     Dates: start: 20001020
  38. ATENOLOL [Concomitant]
     Active Substance: ATENOLOL
     Dosage: 25 MILLIGRAM, QD (1 TABLET BY MOUTH EVERY DAY)
     Route: 048
     Dates: start: 20010831
  39. AMOXICILLIN [Concomitant]
     Active Substance: AMOXICILLIN
     Indication: Infection
     Dosage: 500 MILLIGRAM, BID (ONE CAPSULE BY MOUTH TWICE A DAY)
     Route: 048
     Dates: start: 20020531, end: 20020610
  40. AMOXICILLIN [Concomitant]
     Active Substance: AMOXICILLIN
     Dosage: 500 MILLIGRAM, TID (TAKE ONE CAPSULE BY MOUTH THREE TIMES A DAY)
     Route: 048
     Dates: start: 20110905, end: 20181215
  41. FOSINOPRIL [Concomitant]
     Active Substance: FOSINOPRIL
     Indication: Blood pressure abnormal
     Dosage: 10 MILLIGRAM, QD (ONE TABLET BY MOUTH EVERY DAY)
     Route: 048
     Dates: start: 20020419
  42. METHIMAZOLE [Concomitant]
     Active Substance: METHIMAZOLE
     Indication: Hyperthyroidism
     Dosage: 30 MILLIGRAM, QD (3 TABLETS BY MOUTH EVERY DAY)
     Route: 048
  43. METHIMAZOLE [Concomitant]
     Active Substance: METHIMAZOLE
     Dosage: 10 MILLIGRAM, QD (1 TABLET BY MOUTH EVERY DAY)
     Route: 048
     Dates: start: 20011026
  44. PSEUDOEPHEDRINE [Concomitant]
     Active Substance: PSEUDOEPHEDRINE
     Indication: Nasal congestion
     Dosage: 30 MILLIGRAM, BID (60MG, ONE-HALF TABLET BY MOUTH TWICE A DAY)
     Route: 048
     Dates: start: 20021025
  45. METHOCARBAMOL [Concomitant]
     Active Substance: METHOCARBAMOL
     Indication: Pain
     Dosage: 500 MILLIGRAM, BID (ONE TABLET BY MOUTH TWICE A DAY)
     Route: 048
     Dates: start: 20030518
  46. IBUPROFEN [Concomitant]
     Active Substance: IBUPROFEN
     Indication: Pain
     Dosage: 600 MILLIGRAM, TID (ONE TABLET BY MOUTH THREE TIMES A DAY)
     Route: 048
     Dates: start: 20030518
  47. HYDROCODONE BITARTRATE AND ACETAMINOPHEN [Concomitant]
     Active Substance: ACETAMINOPHEN\HYDROCODONE BITARTRATE
     Indication: Pain
     Dosage: UNK UNK, BID (1 TABLET BY MOUTH TWICE A DAY)
     Route: 048
     Dates: start: 20030518
  48. PHOSPHO-SODA [Concomitant]
     Active Substance: SODIUM PHOSPHATE, DIBASIC\SODIUM PHOSPHATE, MONOBASIC
     Indication: Colonoscopy
     Dosage: UNK (TAKE 1/2 BOTTLE (45ML) BY MOUTH AS DIRECTED DRINK 45ML DILUTED WITH HALF GLASS OF WATER AT 4PM
     Route: 048
     Dates: start: 20041206
  49. BACITRACIN AND POLYMYXIN B SULFATE [Concomitant]
     Active Substance: BACITRACIN\POLYMYXIN B SULFATE
     Indication: Infection
     Dosage: UNK UNK, BID (APPLY SMALL AMOUNT TO AFFECTED AREA TWICE A DAY)
     Route: 061
  50. SILDENAFIL CITRATE [Concomitant]
     Active Substance: SILDENAFIL CITRATE
     Dosage: 100 MILLIGRAM (TAKE ONE-HALF TABLET BY MOUTH AS NEEDED 30 MINUTES BEFORE INTERCOURSE)
     Route: 048
     Dates: start: 20060214, end: 20060316
  51. CYCLOBENZAPRINE HYDROCHLORIDE [Concomitant]
     Active Substance: CYCLOBENZAPRINE HYDROCHLORIDE
     Indication: Muscle spasms
     Dosage: 10 MILLIGRAM, QD (ONE TABLET BY MOUTH AT BEDTIME)
     Dates: start: 20080408
  52. CARBOXYMETHYLCELLULOSE [Concomitant]
     Active Substance: CARBOXYMETHYLCELLULOSE
     Indication: Dry eye
     Dosage: UNK (INSTILL 2 DROPS IN BOTH EYES 5 TIMES A DAY)
     Route: 047
     Dates: start: 20080814, end: 20210918
  53. CARBOXYMETHYLCELLULOSE [Concomitant]
     Active Substance: CARBOXYMETHYLCELLULOSE
     Dosage: UNK (INSTILL 1 DROP IN BOTH EYES 6 TIMES A DAY)
     Dates: start: 20181030, end: 20221030
  54. TRAMADOL HCL [Concomitant]
     Active Substance: TRAMADOL HYDROCHLORIDE
     Indication: Pain
     Dosage: 50 MILLIGRAM, BID (ONE TABLET BY MOUTH TWICE A DAY)
     Route: 048
     Dates: start: 20100416
  55. DICLOFENAC [Concomitant]
     Active Substance: DICLOFENAC
     Indication: Pain
     Dosage: 50 MILLIGRAM, TID (1 TABLET BY MOUTH THREE TIMES A DAY)
     Route: 048
     Dates: start: 20100416
  56. DIPHTHERIA AND TETANUS TOXOIDS AND PERTUSSIS VACCINE ADSORBED NOS [Concomitant]
     Active Substance: DIPHTHERIA AND TETANUS TOXOIDS AND PERTUSSIS VACCINE
     Dosage: 0.5 MILLILITER
     Route: 030
     Dates: start: 20110405
  57. TAMSULOSIN HYDROCHLORIDE [Concomitant]
     Active Substance: TAMSULOSIN HYDROCHLORIDE
     Dosage: 0.4 MILLIGRAM, QD (ONE CAPSULE BY MOUTH AT BEDTIME)
     Route: 048
     Dates: start: 20130529
  58. ERGOCALCIFEROL [Concomitant]
     Active Substance: ERGOCALCIFEROL
     Indication: Vitamin supplementation
     Dosage: 250 MICROGRAM, QWK (TAKE 1 CAPSULE (50000 UNITS) BY MOUTH ONCE A WEEK)
     Route: 048
     Dates: start: 20160712, end: 20160906
  59. GABAPENTIN [Concomitant]
     Active Substance: GABAPENTIN
     Indication: Neuralgia
     Dosage: 300 MILLIGRAM, QD (TAKE ONE CAPSULE BY MOUTH AT BEDTIME FOR 3 DAYS)
     Route: 048
     Dates: start: 20170202
  60. GABAPENTIN [Concomitant]
     Active Substance: GABAPENTIN
     Dosage: 300 MILLIGRAM, BID (TAKE ONE CAPSULE TWICE A DAY FOR 3 DAYS)
  61. GABAPENTIN [Concomitant]
     Active Substance: GABAPENTIN
     Dosage: 300 MILLIGRAM, TID
     Route: 048
     Dates: end: 20180203
  62. ALBUTEROL [Concomitant]
     Active Substance: ALBUTEROL
     Indication: Dyspnoea
     Dosage: 90 MICROGRAM (INHALE 2 PUFFS BY INHALATION FOUR TIMES A DAY)
     Dates: start: 20180105, end: 20180204
  63. CODEINE\GUAIFENESIN [Concomitant]
     Active Substance: CODEINE\GUAIFENESIN
     Indication: Cough
     Dosage: UNK UNK, Q4H (TAKE 2 TEASPOONFULS BY MOUTH EVERY 4 HOURS)
     Route: 048
     Dates: start: 20180110, end: 20180209
  64. BENZONATATE [Concomitant]
     Active Substance: BENZONATATE
     Indication: Cough
     Dosage: 100 MILLIGRAM, TID (TAKE ONE CAPSULE BY MOUTH THREE TIMES A DAY)
     Route: 048
     Dates: start: 20180110, end: 20180209
  65. AZITHROMYCIN [Concomitant]
     Active Substance: AZITHROMYCIN
     Dosage: 250 MILLIGRAM (TAKE TWO TABLETS BY MOUTH EVERY DAY FOR 1 DAY)
     Dates: start: 20180110
  66. AZITHROMYCIN [Concomitant]
     Active Substance: AZITHROMYCIN
     Dosage: 250 MILLIGRAM (TAKE ONE TABLET EVERY DAY FOR 4 DAYS)
     Route: 048
     Dates: end: 20180209
  67. SODIUM IODIDE I-131 [Concomitant]
     Active Substance: SODIUM IODIDE I-131
  68. CHLORHEXIDINE GLUCONATE [Concomitant]
     Active Substance: CHLORHEXIDINE GLUCONATE
     Dosage: UNK (0.12%, RINSE 1 CAPFUL BY MOUTH TWICE A DAY)
     Route: 048
  69. BENZOCAINE [Concomitant]
     Active Substance: BENZOCAINE
     Indication: Toothache
     Dosage: UNK UNK, BID (APPLY THIN LAYER DENT TWICE A DAY)
     Dates: start: 20181115, end: 20181215
  70. FLUOROMETHOLONE [Concomitant]
     Active Substance: FLUOROMETHOLONE
     Indication: Inflammation
     Dosage: UNK UNK, TID (0.1%, INSTILL 1 DROP IN BOTH EYES THREE TIMES A DAY)
  71. FLUOROMETHOLONE [Concomitant]
     Active Substance: FLUOROMETHOLONE
     Dosage: UNK UNK, BID (INSTILL 1 DROP IN BOTH EYES TWICE A DAY)
     Route: 047
     Dates: start: 20220127, end: 20220226
  72. LATANOPROST [Concomitant]
     Active Substance: LATANOPROST
     Indication: Glaucoma
     Dosage: UNK (INSTILL 1 DROP IN BOTH EYES AT BEDTIME)
     Dates: start: 20190301, end: 20210502
  73. MIDAZOLAM [Concomitant]
     Active Substance: MIDAZOLAM
     Dosage: UNK 2MG/2ML (START AT 2MG AND TITRATE EVERY 2 MINUTES AS NEEDED TO MAINTAIN ADEQUATE SEDATION)
     Dates: start: 20211229, end: 20211229
  74. FENTANYL [Concomitant]
     Active Substance: FENTANYL\FENTANYL CITRATE
     Dosage: UNK 50MCG/1ML (START AT 50MCG AND TITRATE EVERY 2 MINUTES AS NEEDED TO MAINTAIN ADEQUATE SEDATION)
     Dates: start: 20211229, end: 20211229
  75. DIPHENHYDRAMINE [Concomitant]
     Active Substance: DIPHENHYDRAMINE
     Dosage: 50 MILLIGRAM PER MILLILITRE (AS NEEDED TO MAINTAIN ADEQUATE SEDATION)
     Dates: start: 20211229, end: 20211229
  76. BISACODYL [Concomitant]
     Active Substance: BISACODYL
     Dosage: 50 MILLIGRAM (TAKE TWO TABLETS BY MOUTH ONCE AS DIRECTED TAKE AT 3PM THE DAY BEFORE SURGERY)
     Route: 048
     Dates: start: 20211215, end: 20220114
  77. FAMOTIDINE [Concomitant]
     Active Substance: FAMOTIDINE
     Indication: Gastric pH decreased
     Dosage: 20 MILLIGRAM, BID (TAKE ONE TABLET BY MOUTH TWICE A DAY)
     Route: 048
     Dates: start: 20220413, end: 20220513
  78. DICLOFENAC [Concomitant]
     Active Substance: DICLOFENAC
     Indication: Pain
     Dosage: 1 GRAM UNK (APPLY 1GM TO LEFT THUMB TO AFFECTED AREA(S) EVERY DAY AS NEEDED, APPLY TO LEFT THUMB ONC
     Route: 061
  79. LIFITEGRAST [Concomitant]
     Active Substance: LIFITEGRAST
     Dosage: UNK (INSTILL 1 DROP IN BOTH EYES TWICE A DAY APPROXIMATELY 12 HOURS APART)
     Route: 047
     Dates: start: 20220127, end: 20230128
  80. CREATININE [Concomitant]
     Active Substance: CREATININE
     Dosage: UNK
  81. TYLENOL [Concomitant]
     Active Substance: ACETAMINOPHEN
     Dosage: UNK
  82. TROPICAMIDE [Concomitant]
     Active Substance: TROPICAMIDE
  83. PHENYLEPHRINE [Concomitant]
     Active Substance: PHENYLEPHRINE HYDROCHLORIDE
  84. COVID-19 vaccine [Concomitant]
     Dosage: UNK
  85. PNEUMOCOCCAL VACCINE POLYVALENT NOS [Concomitant]
     Active Substance: PNEUMOCOCCAL VACCINE, POLYVALENT
     Dosage: UNK
  86. TAPAZOLE [Concomitant]
     Active Substance: METHIMAZOLE
     Dosage: 10 MILLIGRAM, QD

REACTIONS (22)
  - Deafness neurosensory [Not Recovered/Not Resolved]
  - Aortic valve incompetence [Unknown]
  - Mitral valve incompetence [Unknown]
  - Tricuspid valve incompetence [Unknown]
  - Pulmonary valve incompetence [Unknown]
  - Emotional distress [Not Recovered/Not Resolved]
  - Anxiety [Not Recovered/Not Resolved]
  - Product use complaint [Unknown]
  - Sinus bradycardia [Unknown]
  - Koilonychia [Unknown]
  - Onychoclasis [Unknown]
  - Blood thyroid stimulating hormone increased [Unknown]
  - Lymphocyte count increased [Unknown]
  - Basophil count increased [Unknown]
  - Blood creatinine increased [Unknown]
  - Glomerular filtration rate decreased [Unknown]
  - Blood glucose increased [Unknown]
  - Glycosylated haemoglobin increased [Unknown]
  - Blood triglycerides increased [Unknown]
  - Liver disorder [Unknown]
  - Hepatic cyst [Unknown]
  - Hepatic steatosis [Unknown]

NARRATIVE: CASE EVENT DATE: 20220101
